FAERS Safety Report 6976068-5 (Version None)
Quarter: 2010Q3

REPORT INFORMATION
  Report Type: 
  Country: None (occurrence: None)
  Receive Date: 20100910
  Receipt Date: 20100831
  Transmission Date: 20110219
  Serious: Yes (Other)
  Sender: FDA-Public Use
  Company Number: BE-BAYER-201038089GPV

PATIENT
  Sex: Male
  Weight: 73 kg

DRUGS (3)
  1. NEXAVAR [Suspect]
     Route: 048
     Dates: start: 20090915
  2. NEXAVAR [Suspect]
     Route: 048
     Dates: start: 20100308
  3. NEXAVAR [Suspect]
     Route: 048

REACTIONS (24)
  - ABDOMINAL DISCOMFORT [None]
  - ALOPECIA [None]
  - CONSTIPATION [None]
  - DIARRHOEA [None]
  - DRY SKIN [None]
  - DYSPEPSIA [None]
  - ECZEMA [None]
  - GASTROINTESTINAL HYPERMOTILITY [None]
  - HEADACHE [None]
  - HOT FLUSH [None]
  - HYPERHIDROSIS [None]
  - HYPERTENSION [None]
  - HYPOKINESIA [None]
  - NAUSEA [None]
  - PAIN [None]
  - PALMAR-PLANTAR ERYTHRODYSAESTHESIA SYNDROME [None]
  - PRURITUS [None]
  - RASH [None]
  - RASH MACULAR [None]
  - SKIN FISSURES [None]
  - SKIN IRRITATION [None]
  - SKIN REACTION [None]
  - VARICOSE VEIN [None]
  - WEIGHT DECREASED [None]
